FAERS Safety Report 10356206 (Version 4)
Quarter: 2018Q4

REPORT INFORMATION
  Report Type: Report from Study
  Country: US (occurrence: US)
  Receive Date: 20140801
  Receipt Date: 20181203
  Transmission Date: 20190204
  Serious: Yes (Other)
  Sender: FDA-Public Use
  Company Number: US-ROCHE-1439368

PATIENT
  Sex: Female

DRUGS (4)
  1. TRASTUZUMAB. [Suspect]
     Active Substance: TRASTUZUMAB
     Indication: BREAST CANCER METASTATIC
     Dosage: LOADING DOSE
     Route: 042
  2. AMG 386 [Suspect]
     Active Substance: TREBANANIB
     Indication: BREAST CANCER METASTATIC
     Dosage: A1 ARM:10 MG/KG AND A3 ARM: 30 MG/KG
     Route: 042
  3. TRASTUZUMAB. [Suspect]
     Active Substance: TRASTUZUMAB
     Route: 042
  4. PACLITAXEL. [Suspect]
     Active Substance: PACLITAXEL
     Indication: BREAST CANCER METASTATIC
     Route: 042

REACTIONS (23)
  - Peripheral sensory neuropathy [Unknown]
  - Ejection fraction decreased [Unknown]
  - Haemorrhage [Unknown]
  - Ankle fracture [Unknown]
  - Vision blurred [Unknown]
  - Oedema peripheral [Unknown]
  - Embolism arterial [Unknown]
  - Lymphoedema [Unknown]
  - Epistaxis [Unknown]
  - Ocular vascular disorder [Unknown]
  - Nail disorder [Unknown]
  - Embolism venous [Unknown]
  - Rash [Unknown]
  - Paraesthesia [Unknown]
  - Generalised oedema [Unknown]
  - Pleural effusion [Unknown]
  - Asthenia [Unknown]
  - Neutropenia [Unknown]
  - Neuropathy peripheral [Unknown]
  - Fatigue [Unknown]
  - Gamma-glutamyltransferase increased [Recovered/Resolved]
  - Dyspnoea [Unknown]
  - Hypertension [Unknown]
